FAERS Safety Report 9640272 (Version 1)
Quarter: 2013Q4

REPORT INFORMATION
  Report Type: Spontaneous
  Country: US (occurrence: None)
  Receive Date: 20131022
  Receipt Date: 20131022
  Transmission Date: 20140711
  Serious: No
  Sender: FDA-Public Use
  Company Number: None

PATIENT
  Age: 31 Year
  Sex: Female
  Weight: 96.62 kg

DRUGS (4)
  1. MIRENA [Suspect]
  2. PREVACID [Concomitant]
  3. SINGULAIR [Concomitant]
  4. MULTIVITAMIN DAILY [Concomitant]

REACTIONS (7)
  - Myalgia [None]
  - Arthralgia [None]
  - Arthralgia [None]
  - Arthralgia [None]
  - Joint stiffness [None]
  - Joint stiffness [None]
  - Joint stiffness [None]
